FAERS Safety Report 17414993 (Version 1)
Quarter: 2020Q1

REPORT INFORMATION
  Report Type: Spontaneous
  Country: CN (occurrence: CN)
  Receive Date: 20200213
  Receipt Date: 20200213
  Transmission Date: 20200409
  Serious: Yes (Other)
  Sender: FDA-Public Use
  Company Number: CN-JUBILANT CADISTA PHARMACEUTICALS-2020JUB00059

PATIENT
  Age: 28 Year
  Sex: Male

DRUGS (2)
  1. DANAZOL. [Suspect]
     Active Substance: DANAZOL
     Indication: IMMUNE THROMBOCYTOPENIC PURPURA
     Dosage: 100 MG, 2X/DAY
     Route: 048
  2. METHYLPREDNISOLONE. [Suspect]
     Active Substance: METHYLPREDNISOLONE
     Indication: IMMUNE THROMBOCYTOPENIC PURPURA
     Dosage: 40 MG, 1X/DAY
     Route: 048

REACTIONS (1)
  - Acne fulminans [Recovered/Resolved]
